FAERS Safety Report 16510906 (Version 1)
Quarter: 2019Q3

REPORT INFORMATION
  Report Type: Spontaneous
  Country: US (occurrence: US)
  Receive Date: 20190702
  Receipt Date: 20190702
  Transmission Date: 20191004
  Serious: No
  Sender: FDA-Public Use
  Company Number: US-ACCORD-116986

PATIENT
  Age: 68 Year
  Sex: Male

DRUGS (5)
  1. VALSARTAN. [Concomitant]
     Active Substance: VALSARTAN
  2. LEVOTHYROXINE/LEVOTHYROXINE SODIUM [Concomitant]
     Dosage: 150 MCG ONCAD
  3. PRAVASTATIN/PRAVASTATIN SODIUM [Concomitant]
  4. MYCOPHENOLIC ACID. [Suspect]
     Active Substance: MYCOPHENOLIC ACID
     Indication: GRANULOMATOSIS WITH POLYANGIITIS
     Dosage: 2000MG / 500MG TABLET /TWICE A DAY
     Dates: start: 2006
  5. CALCITRIOL. [Concomitant]
     Active Substance: CALCITRIOL
     Dosage: 0.25MG/THREE DAYS A WEEK

REACTIONS (4)
  - Impatience [Not Recovered/Not Resolved]
  - Anger [Not Recovered/Not Resolved]
  - Feeling abnormal [Not Recovered/Not Resolved]
  - Off label use [Unknown]
